FAERS Safety Report 4959387-3 (Version None)
Quarter: 2006Q1

REPORT INFORMATION
  Report Type: 
  Country: None (occurrence: None)
  Receive Date: 20060331
  Receipt Date: 20050823
  Transmission Date: 20060701
  Serious: Yes (Hospitalization)
  Sender: FDA-Public Use
  Company Number: US-MERCK-0508USA03885

PATIENT
  Age: 54 Year
  Sex: Male
  Weight: 104 kg

DRUGS (12)
  1. VIOXX [Suspect]
     Indication: ARTHRITIS
     Route: 048
     Dates: start: 20000223, end: 20030101
  2. VIOXX [Suspect]
     Route: 048
     Dates: start: 20000223, end: 20030101
  3. VIOXX [Suspect]
     Indication: ARTHRALGIA
     Route: 048
     Dates: start: 20000223, end: 20030101
  4. VIOXX [Suspect]
     Route: 048
     Dates: start: 20000223, end: 20030101
  5. COUMADIN [Concomitant]
     Route: 065
  6. BENADRYL [Concomitant]
     Indication: HYPERSENSITIVITY
     Route: 065
  7. FOLIC ACID [Concomitant]
     Route: 065
  8. CYANOCOBALAMIN [Concomitant]
     Route: 065
  9. PYRIDOXINE [Concomitant]
     Route: 065
  10. TYLENOL (CAPLET) [Concomitant]
     Route: 065
  11. DIGOXIN [Concomitant]
     Route: 065
  12. ASPIRIN [Concomitant]
     Route: 065

REACTIONS (17)
  - ABDOMINAL PAIN LOWER [None]
  - ACCIDENT AT WORK [None]
  - CEREBROVASCULAR ACCIDENT [None]
  - CHEST DISCOMFORT [None]
  - COAGULATION TIME PROLONGED [None]
  - COLONIC POLYP [None]
  - DIARRHOEA [None]
  - DIVERTICULUM [None]
  - HAEMORRHOIDS [None]
  - HYPERCHOLESTEROLAEMIA [None]
  - INTERNATIONAL NORMALISED RATIO DECREASED [None]
  - JOINT INJURY [None]
  - KNEE OPERATION [None]
  - LOW DENSITY LIPOPROTEIN INCREASED [None]
  - NERVOUS SYSTEM DISORDER [None]
  - TRANSIENT ISCHAEMIC ATTACK [None]
  - TREATMENT NONCOMPLIANCE [None]
